FAERS Safety Report 24865299 (Version 3)
Quarter: 2025Q3

REPORT INFORMATION
  Report Type: Spontaneous
  Country: VE (occurrence: VE)
  Receive Date: 20250121
  Receipt Date: 20250903
  Transmission Date: 20251021
  Serious: Yes (Death, Hospitalization, Other)
  Sender: NOVARTIS
  Company Number: VE-002147023-NVSC2025VE007932

PATIENT
  Sex: Male

DRUGS (1)
  1. GLIVEC [Suspect]
     Active Substance: IMATINIB MESYLATE
     Indication: Acute lymphocytic leukaemia
     Route: 065

REACTIONS (5)
  - Death [Fatal]
  - Pyrexia [Unknown]
  - Acute lymphocytic leukaemia recurrent [Unknown]
  - Testicular disorder [Unknown]
  - Testicular swelling [Unknown]
